FAERS Safety Report 13404353 (Version 1)
Quarter: 2017Q2

REPORT INFORMATION
  Report Type: Spontaneous
  Country: NL (occurrence: NL)
  Receive Date: 20170405
  Receipt Date: 20170405
  Transmission Date: 20170830
  Serious: Yes (Other)
  Sender: FDA-Public Use
  Company Number: NL-009507513-1703NLD013382

PATIENT
  Sex: Female

DRUGS (3)
  1. MARVELON [Suspect]
     Active Substance: DESOGESTREL\ETHINYL ESTRADIOL
     Indication: DYSMENORRHOEA
     Dosage: TWO TABLET STRIPS OF MARVELON IN A ROW FOLLOWED BY A STOP WEEK
     Route: 048
     Dates: start: 1987, end: 1990
  2. MARVELON [Suspect]
     Active Substance: DESOGESTREL\ETHINYL ESTRADIOL
     Dosage: UNK
     Route: 048
  3. MARVELON [Suspect]
     Active Substance: DESOGESTREL\ETHINYL ESTRADIOL
     Dosage: UNK
     Route: 048

REACTIONS (11)
  - Dysmenorrhoea [Unknown]
  - Metrorrhagia [Unknown]
  - Menorrhagia [Unknown]
  - Drug effect decreased [Unknown]
  - Papilloma viral infection [Unknown]
  - Skin discolouration [Unknown]
  - Vaginal haemorrhage [Unknown]
  - Product use issue [Unknown]
  - Product use in unapproved indication [Unknown]
  - Product use issue [Unknown]
  - Dysmenorrhoea [Unknown]

NARRATIVE: CASE EVENT DATE: 1987
